FAERS Safety Report 9549624 (Version 1)
Quarter: 2013Q3

REPORT INFORMATION
  Report Type: Spontaneous
  Country: US (occurrence: None)
  Receive Date: 20130719
  Receipt Date: 20130719
  Transmission Date: 20140515
  Serious: Yes (Hospitalization)
  Sender: FDA-Public Use
  Company Number: 2012BAX019545

PATIENT
  Age: 79 Year
  Sex: Male

DRUGS (3)
  1. CYTOXAN [Suspect]
     Indication: SALVAGE THERAPY
     Dosage: DAY 1 AND 2 INTRAVENOUS
     Route: 042
     Dates: start: 20120702, end: 20120703
  2. RITUXAN [Suspect]
     Indication: SALVAGE THERAPY
     Dosage: DAY 1
     Route: 042
     Dates: start: 20120702, end: 20120703
  3. FLUDARA [Suspect]
     Indication: SALVAGE THERAPY
     Dosage: DAY 1 AND 2
     Route: 042
     Dates: start: 20120702, end: 20120703

REACTIONS (1)
  - Pyrexia [None]
